FAERS Safety Report 21101767 (Version 1)
Quarter: 2022Q3

REPORT INFORMATION
  Report Type: Spontaneous
  Country: US (occurrence: US)
  Receive Date: 20220719
  Receipt Date: 20220719
  Transmission Date: 20221027
  Serious: Yes (Other)
  Sender: FDA-Public Use
  Company Number: US-JNJFOC-20220723055

PATIENT
  Age: 65 Year
  Sex: Female
  Weight: 52.210 kg

DRUGS (8)
  1. XARELTO [Suspect]
     Active Substance: RIVAROXABAN
     Indication: Cerebrovascular accident prophylaxis
     Route: 048
  2. XARELTO [Suspect]
     Active Substance: RIVAROXABAN
     Indication: Atrial fibrillation
     Route: 048
  3. XARELTO [Suspect]
     Active Substance: RIVAROXABAN
     Route: 048
     Dates: start: 2019
  4. CURCUMIN [Concomitant]
     Active Substance: CURCUMIN
  5. UNITHROID [Concomitant]
     Active Substance: LEVOTHYROXINE SODIUM
     Indication: Hypothyroidism
  6. PROGESTERONE [Concomitant]
     Active Substance: PROGESTERONE
  7. ESTROGENS [Concomitant]
     Active Substance: ESTROGENS
  8. FAMOTIDINE [Concomitant]
     Active Substance: FAMOTIDINE
     Indication: Gastrooesophageal reflux disease

REACTIONS (6)
  - Cerebellar infarction [Unknown]
  - Cerebrovascular accident [Unknown]
  - Fall [Unknown]
  - Splinter haemorrhages [Unknown]
  - Medical procedure [Unknown]
  - Endoscopy [Unknown]
